FAERS Safety Report 10075819 (Version 2)
Quarter: 2014Q2

REPORT INFORMATION
  Report Type: Report from Study
  Country: BR (occurrence: BR)
  Receive Date: 20140414
  Receipt Date: 20140508
  Transmission Date: 20141212
  Serious: Yes (Death, Hospitalization)
  Sender: FDA-Public Use
  Company Number: PHHY2014BR042038

PATIENT
  Age: 62 Year
  Sex: Female
  Weight: 43 kg

DRUGS (5)
  1. SANDOSTATIN LAR [Suspect]
     Indication: GASTROINTESTINAL NEOPLASM
     Dosage: 1 DF, MONTHLY
     Dates: end: 201401
  2. SANDOSTATIN LAR [Suspect]
     Indication: OFF LABEL USE
  3. SUNITINIB MALATE [Suspect]
     Indication: NEOPLASM MALIGNANT
     Dosage: 25 MG, DAILY
     Dates: start: 201311
  4. SUNITINIB MALATE [Suspect]
     Dosage: 12.5 MG, UNK
  5. OMEPRAZOLE [Concomitant]
     Indication: GASTROINTESTINAL DISORDER
     Dosage: 1 DF, DAILY

REACTIONS (14)
  - Malignant neoplasm progression [Fatal]
  - Metastases to lung [Fatal]
  - Metastases to liver [Fatal]
  - Metastases to small intestine [Fatal]
  - Metastases to kidney [Fatal]
  - Abdominal distension [Fatal]
  - Renal failure [Fatal]
  - Malaise [Unknown]
  - Gait disturbance [Recovering/Resolving]
  - Dyspnoea [Recovering/Resolving]
  - Influenza [Not Recovered/Not Resolved]
  - Weight decreased [Not Recovered/Not Resolved]
  - Peripheral swelling [Unknown]
  - Tinnitus [Not Recovered/Not Resolved]
